FAERS Safety Report 8491786-8 (Version None)
Quarter: 2012Q3

REPORT INFORMATION
  Report Type: 
  Country: None (occurrence: None)
  Receive Date: 20120706
  Receipt Date: 20120626
  Transmission Date: 20120928
  Serious: Yes (Hospitalization)
  Sender: FDA-Public Use
  Company Number: PL-AMGEN-POLSP2012040587

PATIENT
  Age: 62 Year
  Sex: Female
  Weight: 78 kg

DRUGS (6)
  1. ENBREL [Suspect]
     Indication: RHEUMATOID ARTHRITIS
     Dosage: 50 MG, 1X/WEEK
     Route: 058
     Dates: start: 20120323, end: 20120625
  2. ARAVA [Concomitant]
     Indication: RHEUMATOID ARTHRITIS
     Dosage: 20 MG/D
     Dates: start: 20110201, end: 20120625
  3. METYPRED                           /00049601/ [Concomitant]
     Indication: RHEUMATOID ARTHRITIS
     Dosage: 6 MG/24H
     Dates: start: 20100503
  4. VIGANTOL                           /00318501/ [Concomitant]
     Indication: OSTEOPOROSIS PROPHYLAXIS
     Dosage: 2000 IU/24H
     Dates: start: 20110201
  5. CALPEROS                           /00751519/ [Concomitant]
     Indication: OSTEOPOROSIS PROPHYLAXIS
     Dosage: 1000 MG/24H
     Dates: start: 20110201
  6. VIVACE                             /00885601/ [Concomitant]
     Indication: HYPERTENSION
     Dosage: 10 MG/24H
     Dates: start: 20110201

REACTIONS (2)
  - PARALYSIS FLACCID [None]
  - PAIN [None]
